FAERS Safety Report 25700628 (Version 1)
Quarter: 2025Q3

REPORT INFORMATION
  Report Type: Spontaneous
  Country: US (occurrence: US)
  Receive Date: 20250819
  Receipt Date: 20250819
  Transmission Date: 20251021
  Serious: Yes (Other)
  Sender: Unknown Manufacturer
  Company Number: US-MIRUM PHARMACEUTICALS, INC.-US-MIR-25-00552

PATIENT

DRUGS (6)
  1. CHOLIC ACID [Suspect]
     Active Substance: CHOLIC ACID
     Indication: Smith-Lemli-Opitz syndrome
     Dosage: 10 MILLIGRAM/KILOGRAM, QD (DIVIDED INTO 3 DOSES, AT 50 MONTHS OF AGE)
     Route: 065
  2. CHOLIC ACID [Suspect]
     Active Substance: CHOLIC ACID
     Dosage: 10 MILLIGRAM/KILOGRAM, QD (AT 53 MONTHS OF AGE)
     Route: 065
  3. MILK OF MAGNESIA [Concomitant]
     Active Substance: MAGNESIUM HYDROXIDE
     Indication: Constipation
     Route: 065
  4. CHOLESTEROL [Concomitant]
     Active Substance: CHOLESTEROL
     Indication: Product used for unknown indication
     Dosage: 95 MILLIGRAM/KILOGRAM, QD
     Route: 065
  5. COENZYME Q10 [Concomitant]
     Active Substance: DIETARY SUPPLEMENT\UBIDECARENONE
     Indication: Product used for unknown indication
     Route: 065
  6. HYDROCORTISONE [Concomitant]
     Active Substance: HYDROCORTISONE
     Indication: Product used for unknown indication
     Route: 065

REACTIONS (1)
  - Pancreatitis acute [Unknown]
